FAERS Safety Report 6021982-0 (Version None)
Quarter: 2008Q4

REPORT INFORMATION
  Report Type: 
  Country: None (occurrence: None)
  Receive Date: 20081229
  Receipt Date: 20081223
  Transmission Date: 20090506
  Serious: Yes (Death)
  Sender: FDA-Public Use
  Company Number: US-ASTRAZENECA-2008AC03399

PATIENT
  Age: 69 Year
  Sex: Male

DRUGS (14)
  1. METOPROLOL [Suspect]
     Route: 048
  2. LISINOPRIL [Suspect]
     Route: 048
  3. AMLODIPINE [Suspect]
     Route: 048
  4. CLONIDINE [Suspect]
     Route: 048
  5. SALICYLATE [Suspect]
     Route: 048
  6. ALBUTEROL [Suspect]
     Route: 048
  7. RANITIDINE [Suspect]
     Route: 048
  8. TIAGABINE [Suspect]
     Route: 048
  9. DIURETIC [Suspect]
     Route: 048
  10. CLOPIDOGREL [Suspect]
     Route: 048
  11. EZETIMIBE [Suspect]
     Route: 048
  12. LORAZEPAM [Suspect]
     Route: 048
  13. ATORVASTATIN CALCIUM [Suspect]
     Route: 048
  14. PHENYTOIN [Suspect]
     Route: 048

REACTIONS (1)
  - COMPLETED SUICIDE [None]
